FAERS Safety Report 10049983 (Version 2)
Quarter: 2014Q3

REPORT INFORMATION
  Report Type: Spontaneous
  Country: BR (occurrence: BR)
  Receive Date: 20140401
  Receipt Date: 20140926
  Transmission Date: 20150326
  Serious: Yes (Other)
  Sender: FDA-Public Use
  Company Number: BR-ASTRAZENECA-2014SE21103

PATIENT
  Age: 52 Year
  Sex: Female
  Weight: 89 kg

DRUGS (13)
  1. ATACAND [Suspect]
     Active Substance: CANDESARTAN CILEXETIL
     Indication: HYPERTENSION
     Route: 048
     Dates: start: 2010
  2. OPTIVE COLLYRIUM [Concomitant]
     Indication: LACRIMATION DECREASED
     Dosage: DAILY
     Route: 047
     Dates: start: 2010
  3. OPTIVE COLLYRIUM [Concomitant]
     Indication: EYE PAIN
     Dosage: DAILY
     Route: 047
     Dates: start: 2010
  4. RELESTAT COLLYRIUM [Concomitant]
     Indication: VISUAL IMPAIRMENT
     Dosage: DAILY
     Route: 047
     Dates: start: 2010
  5. EPITEGEL OPHTHALMIC CREAM [Concomitant]
     Indication: LACRIMATION DECREASED
     Dosage: DAILY
     Route: 047
     Dates: start: 2010
  6. TENSALIV [Concomitant]
     Route: 048
  7. RELESTAT COLLYRIUM [Concomitant]
     Indication: LACRIMATION DECREASED
     Dosage: DAILY
     Route: 047
     Dates: start: 2010
  8. RELESTAT COLLYRIUM [Concomitant]
     Indication: EYE PAIN
     Dosage: DAILY
     Route: 047
     Dates: start: 2010
  9. APRESSOLINA [Concomitant]
     Route: 048
  10. OPTIVE COLLYRIUM [Concomitant]
     Indication: VISUAL IMPAIRMENT
     Dosage: DAILY
     Route: 047
     Dates: start: 2010
  11. EPITEGEL OPHTHALMIC CREAM [Concomitant]
     Indication: VISUAL IMPAIRMENT
     Dosage: DAILY
     Route: 047
     Dates: start: 2010
  12. EPITEGEL OPHTHALMIC CREAM [Concomitant]
     Indication: EYE PAIN
     Dosage: DAILY
     Route: 047
     Dates: start: 2010
  13. ATENOLOL. [Suspect]
     Active Substance: ATENOLOL
     Route: 048

REACTIONS (6)
  - Cataract [Recovered/Resolved]
  - Lacrimation decreased [Not Recovered/Not Resolved]
  - Eye pain [Not Recovered/Not Resolved]
  - Cataract [Recovered/Resolved]
  - Visual impairment [Not Recovered/Not Resolved]
  - Device dislocation [Not Recovered/Not Resolved]

NARRATIVE: CASE EVENT DATE: 2010
